FAERS Safety Report 26185704 (Version 1)
Quarter: 2025Q4

REPORT INFORMATION
  Report Type: Spontaneous
  Country: CN (occurrence: CN)
  Receive Date: 20251222
  Receipt Date: 20251222
  Transmission Date: 20260118
  Serious: Yes (Hospitalization, Other)
  Sender: BAXTER
  Company Number: None

PATIENT
  Age: 13 Year
  Sex: Male
  Weight: 56.3 kg

DRUGS (5)
  1. CYCLOPHOSPHAMIDE [Suspect]
     Active Substance: CYCLOPHOSPHAMIDE
     Indication: Acute lymphocytic leukaemia
     Dosage: 1.6 G, QD, D1
     Route: 041
     Dates: start: 20250819, end: 20250819
  2. SODIUM CHLORIDE [Suspect]
     Active Substance: SODIUM CHLORIDE
     Dosage: 250 ML, QD, 0.9% NACL WITH CYCLOPHOSPHAMIDE, ONCE (D1)
     Route: 041
     Dates: start: 20250819, end: 20250819
  3. DEXTROSE\SODIUM CHLORIDE [Suspect]
     Active Substance: DEXTROSE\SODIUM CHLORIDE
     Dosage: (4: 1) GNS 250 ML + CYTARABINE Q12H (6 TIMES IN TOTAL)
     Route: 041
     Dates: start: 20250819, end: 20250821
  4. MERCAPTOPURINE [Suspect]
     Active Substance: MERCAPTOPURINE
     Indication: Acute lymphocytic leukaemia
     Dosage: 80 MG, QD, QN (D1-D7)
     Route: 048
     Dates: start: 20250819, end: 20250825
  5. CYTARABINE [Suspect]
     Active Substance: CYTARABINE
     Indication: Acute lymphocytic leukaemia
     Dosage: 1.6 G, BID, Q12H, 6 TIMES IN TOTAL
     Route: 041
     Dates: start: 20250819, end: 20250821

REACTIONS (1)
  - Myelosuppression [Recovering/Resolving]

NARRATIVE: CASE EVENT DATE: 20250828
